FAERS Safety Report 9019738 (Version 2)
Quarter: 2013Q1

REPORT INFORMATION
  Report Type: Report from Study
  Country: US (occurrence: US)
  Receive Date: 20130118
  Receipt Date: 20130212
  Transmission Date: 20140127
  Serious: Yes (Death)
  Sender: FDA-Public Use
  Company Number: US-ROCHE-1181017

PATIENT
  Sex: Female

DRUGS (1)
  1. RITUXAN [Suspect]
     Indication: NEOPLASM MALIGNANT
     Route: 065
     Dates: end: 20120530

REACTIONS (2)
  - Splenic rupture [Fatal]
  - Splenomegaly [Fatal]
